FAERS Safety Report 9216217 (Version 2)
Quarter: 2013Q2

REPORT INFORMATION
  Report Type: Spontaneous
  Country: GB (occurrence: None)
  Receive Date: 20130404
  Receipt Date: 20130404
  Transmission Date: 20140414
  Serious: Yes (Other)
  Sender: FDA-Public Use
  Company Number: AUR-APL-2013-02574

PATIENT
  Age: 60 Year
  Sex: Female
  Weight: 47 kg

DRUGS (2)
  1. BISOPROLOL [Suspect]
     Indication: ATRIAL FIBRILLATION
     Dosage: 1 IN 1 D
  2. ASPIRIN (ACETYLSALICYLIC ACID) [Concomitant]

REACTIONS (8)
  - Tremor [None]
  - Tremor [None]
  - Dyskinesia [None]
  - Dizziness [None]
  - Asthenia [None]
  - Malaise [None]
  - Muscle spasms [None]
  - Blood pressure decreased [None]
